FAERS Safety Report 9059236 (Version 3)
Quarter: 2013Q1

REPORT INFORMATION
  Report Type: Spontaneous
  Country: US (occurrence: US)
  Receive Date: 20130130
  Receipt Date: 20130322
  Transmission Date: 20140127
  Serious: Yes (Hospitalization, Other)
  Sender: FDA-Public Use
  Company Number: US-TARO-2013P1001132

PATIENT
  Age: 57 Year
  Sex: Male

DRUGS (4)
  1. PHENYTOIN SODIUM EXTENDED CAPSULES USP 100MG [Suspect]
     Indication: CONVULSION
     Route: 048
     Dates: start: 200905
  2. ASPIRIN [Concomitant]
     Route: 048
     Dates: start: 20081021
  3. VALACYCLOVIR [Concomitant]
     Dates: end: 200905
  4. VALACYCLOVIR [Concomitant]
     Route: 048
     Dates: start: 200905

REACTIONS (11)
  - Anticonvulsant drug level abnormal [Unknown]
  - Complex partial seizures [Recovered/Resolved]
  - Muscular weakness [Recovered/Resolved]
  - VIIth nerve paralysis [Recovered/Resolved]
  - Dysarthria [Recovered/Resolved]
  - Drooling [Unknown]
  - Necrotising retinitis [Not Recovered/Not Resolved]
  - Herpes zoster [Not Recovered/Not Resolved]
  - Obesity [Not Recovered/Not Resolved]
  - Cerebral cyst [Not Recovered/Not Resolved]
  - Arachnoid cyst [Not Recovered/Not Resolved]
